FAERS Safety Report 11423288 (Version 1)
Quarter: 2015Q3

REPORT INFORMATION
  Report Type: Spontaneous
  Country: US (occurrence: None)
  Receive Date: 20150826
  Receipt Date: 20150826
  Transmission Date: 20151125
  Serious: No
  Sender: FDA-Public Use
  Company Number: None

PATIENT
  Age: 38 Year
  Sex: Female

DRUGS (1)
  1. CERDELGA [Suspect]
     Active Substance: ELIGLUSTAT
     Indication: METABOLIC DISORDER
     Route: 048
     Dates: start: 20150720

REACTIONS (1)
  - Migraine [None]

NARRATIVE: CASE EVENT DATE: 20150727
